FAERS Safety Report 14352843 (Version 1)
Quarter: 2018Q1

REPORT INFORMATION
  Report Type: Spontaneous
  Country: US (occurrence: US)
  Receive Date: 20180104
  Receipt Date: 20180104
  Transmission Date: 20180509
  Serious: No
  Sender: FDA-Public Use
  Company Number: US-PFIZER INC-2017546943

PATIENT
  Age: 56 Year
  Sex: Female

DRUGS (1)
  1. CHANTIX [Suspect]
     Active Substance: VARENICLINE TARTRATE
     Indication: SMOKING CESSATION THERAPY
     Dosage: UNK (STARTER PACK)

REACTIONS (5)
  - Ulcer [Unknown]
  - Hypophagia [Unknown]
  - Feeling abnormal [Unknown]
  - Abnormal dreams [Recovered/Resolved]
  - Insomnia [Unknown]
